FAERS Safety Report 5658369-6 (Version None)
Quarter: 2008Q1

REPORT INFORMATION
  Report Type: 
  Country: None (occurrence: None)
  Receive Date: 20080310
  Receipt Date: 20070206
  Transmission Date: 20080703
  Serious: Yes (Other)
  Sender: FDA-Public Use
  Company Number: US-BAYER-200710398BCC

PATIENT
  Age: 58 Year
  Sex: Female

DRUGS (1)
  1. ALEVE [Suspect]
     Indication: ARTHRALGIA
     Dosage: TOTAL DAILY DOSE: 440 MG  UNIT DOSE: 220 MG
     Route: 048
     Dates: start: 20070131

REACTIONS (4)
  - ASTHMA [None]
  - BRONCHIAL OBSTRUCTION [None]
  - INCREASED UPPER AIRWAY SECRETION [None]
  - WHEEZING [None]
